FAERS Safety Report 9191481 (Version 3)
Quarter: 2013Q2

REPORT INFORMATION
  Report Type: Report from Study
  Country: IT (occurrence: IT)
  Receive Date: 20130326
  Receipt Date: 20130516
  Transmission Date: 20140414
  Serious: Yes (Death, Hospitalization)
  Sender: FDA-Public Use
  Company Number: IT-CELGENEUS-083-C5013-13033241

PATIENT
  Age: 81 Year
  Sex: Male
  Weight: 75 kg

DRUGS (6)
  1. CC-5013 [Suspect]
     Indication: PLASMA CELL MYELOMA
     Route: 048
     Dates: start: 20080122, end: 20090107
  2. CC-5013 [Suspect]
     Route: 048
     Dates: start: 20100311, end: 20110629
  3. MELPHALAN [Suspect]
     Indication: PLASMA CELL MYELOMA
     Route: 048
     Dates: start: 20080122, end: 20081221
  4. PREDNISONE [Suspect]
     Indication: PLASMA CELL MYELOMA
     Route: 048
     Dates: start: 20080122, end: 20081221
  5. PLACEBO FOR CC-5013 [Suspect]
     Indication: PLASMA CELL MYELOMA
     Route: 048
     Dates: start: 20090115, end: 20090204
  6. PLACEBO FOR CC-5013 [Suspect]
     Route: 048
     Dates: start: 20100211, end: 20100303

REACTIONS (1)
  - Malignant neoplasm of unknown primary site [Fatal]
